FAERS Safety Report 21782005 (Version 1)
Quarter: 2022Q4

REPORT INFORMATION
  Report Type: Spontaneous
  Country: IT (occurrence: IT)
  Receive Date: 20221227
  Receipt Date: 20221227
  Transmission Date: 20230112
  Serious: Yes (Hospitalization, Other)
  Sender: FDA-Public Use
  Company Number: IT-MLMSERVICE-20221212-3979511-1

PATIENT
  Age: 88 Year
  Sex: Female

DRUGS (3)
  1. HYDROCHLOROTHIAZIDE [Suspect]
     Active Substance: HYDROCHLOROTHIAZIDE
     Indication: Diuretic therapy
  2. BISOPROLOL [Concomitant]
     Active Substance: BISOPROLOL
  3. RIVAROXABAN [Concomitant]
     Active Substance: RIVAROXABAN
     Indication: Anticoagulant therapy
     Route: 048

REACTIONS (6)
  - Chronic obstructive pulmonary disease [Recovered/Resolved]
  - Stress cardiomyopathy [Recovered/Resolved]
  - Bundle branch block left [Recovered/Resolved]
  - Presyncope [Recovered/Resolved]
  - Hyponatraemia [Recovered/Resolved]
  - Cardiac failure congestive [Recovered/Resolved]
